FAERS Safety Report 5688983-3 (Version None)
Quarter: 2008Q1

REPORT INFORMATION
  Report Type: 
  Country: None (occurrence: None)
  Receive Date: 20080331
  Receipt Date: 20080319
  Transmission Date: 20080703
  Serious: Yes (Congenital Anomaly)
  Sender: FDA-Public Use
  Company Number: A0685063A

PATIENT
  Sex: Male

DRUGS (4)
  1. PAXIL [Suspect]
     Indication: DEPRESSION
     Dates: start: 19990504, end: 19991102
  2. VITAMIN TAB [Concomitant]
     Indication: PREGNANCY
  3. NIX [Concomitant]
     Dates: start: 20000221
  4. BRETHINE [Concomitant]
     Dates: start: 19991006

REACTIONS (2)
  - CARDIAC SEPTAL DEFECT [None]
  - DRUG EXPOSURE DURING PREGNANCY [None]
